FAERS Safety Report 19845376 (Version 1)
Quarter: 2021Q3

REPORT INFORMATION
  Report Type: Spontaneous
  Country: CA (occurrence: CA)
  Receive Date: 20210917
  Receipt Date: 20210917
  Transmission Date: 20211014
  Serious: Yes (Disabling, Other)
  Sender: FDA-Public Use
  Company Number: NVSC2021CA204822

PATIENT
  Age: 73 Year
  Sex: Male

DRUGS (1)
  1. SANDOZ TAMSULOSIN [Suspect]
     Active Substance: TAMSULOSIN
     Indication: BENIGN PROSTATIC HYPERPLASIA
     Dosage: 0.8 MG, QD
     Route: 048

REACTIONS (2)
  - Mouth breathing [Recovered/Resolved]
  - Nasal congestion [Recovered/Resolved]
